FAERS Safety Report 12957757 (Version 5)
Quarter: 2017Q1

REPORT INFORMATION
  Report Type: Report from Study
  Country: US (occurrence: US)
  Receive Date: 20161118
  Receipt Date: 20170308
  Transmission Date: 20170428
  Serious: Yes (Life-Threatening, Hospitalization)
  Sender: FDA-Public Use
  Company Number: PHHO2016US016666

PATIENT
  Age: 38 Year
  Sex: Female
  Weight: 114.9 kg

DRUGS (16)
  1. AFINITOR [Suspect]
     Active Substance: EVEROLIMUS
     Dosage: 7.5 MG, QD
     Route: 048
     Dates: start: 20160808, end: 20170108
  2. HYDROMORPHONE [Concomitant]
     Active Substance: HYDROMORPHONE
     Indication: CANCER PAIN
     Dosage: 8 MG, EVERY 4 HRS AS NEEDED
     Route: 065
     Dates: start: 20170104
  3. CGS 20267 [Suspect]
     Active Substance: LETROZOLE
     Dosage: 2.5 MG, QD
     Route: 048
     Dates: start: 20170211
  4. NEURONTIN [Concomitant]
     Active Substance: GABAPENTIN
     Indication: HYPERGLYCAEMIA
     Dosage: 600 MG, QD
     Route: 048
     Dates: start: 20170104
  5. CGS 20267 [Suspect]
     Active Substance: LETROZOLE
     Indication: BREAST CANCER METASTATIC
     Dosage: 2.5 MG, QD
     Route: 048
     Dates: start: 20160527, end: 20160727
  6. HYDROMORPHONE [Concomitant]
     Active Substance: HYDROMORPHONE
     Dosage: 8 MG, PRN, IMMEDIATE RELEASE
     Route: 065
  7. METFORMIN [Concomitant]
     Active Substance: METFORMIN HYDROCHLORIDE
     Indication: HYPERGLYCAEMIA
     Dosage: 500 MG, QD
     Route: 048
     Dates: start: 20160728
  8. VANCOMYCIN [Concomitant]
     Active Substance: VANCOMYCIN
     Indication: OEDEMA
     Route: 042
  9. TRASTUZUMAB [Suspect]
     Active Substance: TRASTUZUMAB
     Dosage: 6 MG/KG, DAY 1Q 21 DAYS
     Route: 042
     Dates: start: 20160808, end: 20170108
  10. CGS 20267 [Suspect]
     Active Substance: LETROZOLE
     Dosage: 2.5 MG, QD
     Route: 048
     Dates: start: 20160808, end: 20170108
  11. TRASTUZUMAB [Suspect]
     Active Substance: TRASTUZUMAB
     Indication: BREAST CANCER METASTATIC
     Dosage: 6 MG/KG, DAY 1Q 21 DAYS
     Route: 042
     Dates: start: 20160527, end: 20160706
  12. TRASTUZUMAB [Suspect]
     Active Substance: TRASTUZUMAB
     Dosage: 6 MG/KG, DAY 1Q 21 DAYS
     Route: 042
     Dates: start: 20170211
  13. AFINITOR [Suspect]
     Active Substance: EVEROLIMUS
     Indication: BREAST CANCER METASTATIC
     Dosage: 7.5 MG, QD
     Route: 048
     Dates: start: 20160527, end: 20160727
  14. NEURONTIN [Concomitant]
     Active Substance: GABAPENTIN
     Indication: CANCER PAIN
     Dosage: 600 MG, QD
     Route: 048
     Dates: start: 20170104
  15. AFINITOR [Suspect]
     Active Substance: EVEROLIMUS
     Dosage: 7.5 MG, QD
     Route: 048
     Dates: start: 20170211
  16. CIPROFLOXACIN. [Concomitant]
     Active Substance: CIPROFLOXACIN
     Indication: OEDEMA
     Route: 042

REACTIONS (7)
  - Pneumonia [Recovered/Resolved]
  - Breast cancer metastatic [Not Recovered/Not Resolved]
  - Breast pain [Recovering/Resolving]
  - Fatigue [Recovered/Resolved]
  - Hyperglycaemia [Recovering/Resolving]
  - Staphylococcal bacteraemia [Recovering/Resolving]
  - Fall [Recovered/Resolved]

NARRATIVE: CASE EVENT DATE: 20160728
